FAERS Safety Report 19947897 (Version 1)
Quarter: 2021Q4

REPORT INFORMATION
  Report Type: Spontaneous
  Country: US (occurrence: US)
  Receive Date: 20211013
  Receipt Date: 20211013
  Transmission Date: 20220303
  Serious: No
  Sender: FDA-Public Use
  Company Number: US-DRREDDYS-SPO/USA/21/0142496

PATIENT
  Age: 79 Year

DRUGS (1)
  1. ZENATANE [Suspect]
     Active Substance: ISOTRETINOIN
     Indication: Product used for unknown indication
     Dosage: RMA ISSUE DATE: 30/JULY/2021 12:06:49 PM AND 2/SEPTEMBER/2021 12:07:05 PM
     Dates: end: 20210920

REACTIONS (1)
  - Treatment noncompliance [Unknown]

NARRATIVE: CASE EVENT DATE: 20210920
